FAERS Safety Report 8094501-5 (Version None)
Quarter: 2012Q1

REPORT INFORMATION
  Report Type: 
  Country: None (occurrence: None)
  Receive Date: 20120131
  Receipt Date: 20120126
  Transmission Date: 20120608
  Serious: Yes (Other)
  Sender: FDA-Public Use
  Company Number: ES-PFIZER INC-2012022729

PATIENT
  Age: 84 Year
  Sex: Female

DRUGS (4)
  1. PIPERACILLIN AND TAZOBACTAM [Suspect]
     Indication: ABDOMINAL INFECTION
     Dosage: 4 G, 3X/DAY
     Route: 042
     Dates: start: 20111007, end: 20111019
  2. METAMIZOLE [Concomitant]
     Indication: PAIN
     Dosage: 2 MG, 3X/DAY
     Route: 042
     Dates: start: 20111011, end: 20111105
  3. SINTROM [Concomitant]
     Indication: ATRIAL FIBRILLATION
     Dosage: UNK
     Dates: end: 20111006
  4. ENOXAPARIN SODIUM [Interacting]
     Indication: ATRIAL FIBRILLATION
     Dosage: 60 MG, 1X/DAY
     Route: 058
     Dates: start: 20111007, end: 20111017

REACTIONS (2)
  - DRUG INTERACTION [None]
  - POST PROCEDURAL HAEMORRHAGE [None]
